FAERS Safety Report 13333450 (Version 3)
Quarter: 2017Q4

REPORT INFORMATION
  Report Type: Spontaneous
  Country: JP (occurrence: JP)
  Receive Date: 20170314
  Receipt Date: 20171213
  Transmission Date: 20180320
  Serious: Yes (Other)
  Sender: FDA-Public Use
  Company Number: JP-009507513-1603JPN000794

PATIENT
  Sex: Female

DRUGS (7)
  1. JANUVIA [Suspect]
     Active Substance: SITAGLIPTIN PHOSPHATE
     Dosage: 25 MG, QD
     Route: 048
  2. MYSLEE [Suspect]
     Active Substance: ZOLPIDEM TARTRATE
     Indication: INSOMNIA
     Dosage: UNK
     Route: 048
     Dates: start: 2012
  3. GLIMICRON [Concomitant]
     Active Substance: GLICLAZIDE
     Dosage: 20 MG, UNK
     Route: 065
  4. JANUVIA [Suspect]
     Active Substance: SITAGLIPTIN PHOSPHATE
     Indication: DIABETES MELLITUS
     Dosage: 37.5 MG, 25MG IN THE MORNING, HALF OF 12.5MG IN THE EVENING
     Route: 048
     Dates: start: 2014
  5. NU-LOTAN TABLETS 50MG [Suspect]
     Active Substance: LOSARTAN
     Indication: HYPERTENSION
     Dosage: UNK UNK, QD
     Route: 048
  6. GLIMICRON [Concomitant]
     Active Substance: GLICLAZIDE
     Dosage: DOSE INCREASED
     Route: 065
  7. AMARYL [Suspect]
     Active Substance: GLIMEPIRIDE
     Indication: DIABETES MELLITUS
     Dosage: 0.5 MG, UNK
     Route: 048

REACTIONS (10)
  - Weight decreased [Unknown]
  - Feeling abnormal [Unknown]
  - Inappropriate schedule of drug administration [Unknown]
  - Cerebral infarction [Unknown]
  - Hyperglycaemia [Unknown]
  - Proteinuria [Unknown]
  - Hypoglycaemia [Recovered/Resolved]
  - Drug ineffective [Unknown]
  - Renal impairment [Unknown]
  - Asthenia [Unknown]

NARRATIVE: CASE EVENT DATE: 2014
